FAERS Safety Report 5496174-4 (Version None)
Quarter: 2007Q4

REPORT INFORMATION
  Report Type: 
  Country: None (occurrence: None)
  Receive Date: 20071023
  Receipt Date: 20071023
  Transmission Date: 20080405
  Serious: Yes (Other)
  Sender: FDA-Public Use
  Company Number: None

PATIENT
  Sex: Male
  Weight: 73.9363 kg

DRUGS (1)
  1. VIAGRA [Suspect]
     Indication: ERECTILE DYSFUNCTION
     Dosage: 25MG WEEKLY PO
     Route: 048
     Dates: start: 20000101, end: 20070920

REACTIONS (5)
  - DEAFNESS TRANSITORY [None]
  - DEAFNESS UNILATERAL [None]
  - DYSPHONIA [None]
  - SUDDEN HEARING LOSS [None]
  - TINNITUS [None]
